FAERS Safety Report 14250475 (Version 1)
Quarter: 2017Q4

REPORT INFORMATION
  Report Type: Spontaneous
  Country: US (occurrence: None)
  Receive Date: 20171205
  Receipt Date: 20171205
  Transmission Date: 20180321
  Serious: Yes (Death)
  Sender: FDA-Public Use
  Company Number: None

PATIENT
  Age: 56 Year
  Sex: Male

DRUGS (15)
  1. XANAX [Concomitant]
     Active Substance: ALPRAZOLAM
  2. LEVTHYROXINE [Concomitant]
     Active Substance: LEVOTHYROXINE
  3. OPDIVO [Concomitant]
     Active Substance: NIVOLUMAB
  4. COTELLIC [Suspect]
     Active Substance: COBIMETINIB
     Indication: NEOPLASM MALIGNANT
     Route: 048
     Dates: start: 20170912, end: 20171017
  5. FLORASTOR [Concomitant]
     Active Substance: SACCHAROMYCES CEREVISIAE
  6. CALCIUM [Concomitant]
     Active Substance: CALCIUM
  7. DEXAMETHASONE. [Concomitant]
     Active Substance: DEXAMETHASONE
  8. LEVOFLOXACIN. [Concomitant]
     Active Substance: LEVOFLOXACIN
  9. MAGNESIUM [Concomitant]
     Active Substance: MAGNESIUM
  10. DULCOLAX NOS [Concomitant]
     Active Substance: BISACODYL OR DOCUSATE SODIUM
  11. METOPROLOL. [Concomitant]
     Active Substance: METOPROLOL
  12. TEMOZOLOMIDE. [Concomitant]
     Active Substance: TEMOZOLOMIDE
  13. TRAMADOL. [Concomitant]
     Active Substance: TRAMADOL
  14. TYLENOL [Concomitant]
     Active Substance: ACETAMINOPHEN
  15. YERVOY [Concomitant]
     Active Substance: IPILIMUMAB

REACTIONS (1)
  - Death [None]

NARRATIVE: CASE EVENT DATE: 20171017
